FAERS Safety Report 7973316-X (Version None)
Quarter: 2011Q4

REPORT INFORMATION
  Report Type: 
  Country: None (occurrence: None)
  Receive Date: 20111213
  Receipt Date: 20111212
  Transmission Date: 20120403
  Serious: Yes (Death, Life-Threatening, Hospitalization)
  Sender: FDA-Public Use
  Company Number: JP-ABBOTT-11P-087-0849266-00

PATIENT
  Sex: Female

DRUGS (6)
  1. METHOTREXATE [Suspect]
     Indication: RHEUMATOID ARTHRITIS
     Route: 048
     Dates: start: 20100208, end: 20110812
  2. HUMIRA [Suspect]
     Indication: RHEUMATOID ARTHRITIS
     Route: 058
     Dates: start: 20100707, end: 20110218
  3. HUMIRA [Suspect]
     Dates: start: 20110418, end: 20110629
  4. SODIUM RISEDRONATE HYDRATE [Concomitant]
     Indication: OSTEOPOROSIS
     Route: 048
     Dates: start: 20101112, end: 20110812
  5. LOXOPROFEN SODIUM HYDRATE [Concomitant]
     Indication: RHEUMATOID ARTHRITIS
     Route: 048
     Dates: start: 20110101, end: 20110815
  6. REBAMIPIDE [Concomitant]
     Indication: GASTRITIS PROPHYLAXIS
     Route: 048
     Dates: start: 20110101, end: 20110815

REACTIONS (10)
  - CARDIO-RESPIRATORY ARREST [None]
  - FALL [None]
  - BACK PAIN [None]
  - MULTI-ORGAN FAILURE [None]
  - INTERSTITIAL LUNG DISEASE [None]
  - ATRIAL FIBRILLATION [None]
  - OSTEOPOROSIS [None]
  - MOBILITY DECREASED [None]
  - SPINAL COMPRESSION FRACTURE [None]
  - PYREXIA [None]
